FAERS Safety Report 10355194 (Version 2)
Quarter: 2014Q3

REPORT INFORMATION
  Report Type: Spontaneous
  Country: US (occurrence: US)
  Receive Date: 20140731
  Receipt Date: 20140731
  Transmission Date: 20150326
  Serious: Yes (Other)
  Sender: FDA-Public Use
  Company Number: US-009507513-2009SP023502

PATIENT
  Sex: Female
  Weight: 90.72 kg

DRUGS (3)
  1. NUVARING [Suspect]
     Active Substance: ETHINYL ESTRADIOL\ETONOGESTREL
     Indication: CONTRACEPTION
     Route: 067
     Dates: start: 200203, end: 20030908
  2. PHENTERMINE [Concomitant]
     Active Substance: PHENTERMINE
     Indication: MEDICAL DIET
     Dosage: UNK UNK, QD
     Dates: start: 2000
  3. NUVARING [Suspect]
     Active Substance: ETHINYL ESTRADIOL\ETONOGESTREL
     Indication: MENSTRUAL CYCLE MANAGEMENT

REACTIONS (9)
  - Factor V Leiden mutation [Unknown]
  - Deep vein thrombosis [Recovered/Resolved]
  - Peripheral venous disease [Unknown]
  - Lung disorder [Unknown]
  - Phlebitis [Unknown]
  - Hypothyroidism [Unknown]
  - Embolism venous [Unknown]
  - Bronchitis [Unknown]
  - Thrombophlebitis [Unknown]

NARRATIVE: CASE EVENT DATE: 200210
